FAERS Safety Report 8217188 (Version 2)
Quarter: 2012Q4

REPORT INFORMATION
  Report Type: 
  Country: US (occurrence: US)
  Receive Date: 20111101
  Receipt Date: 20121018
  Transmission Date: 20130627
  Serious: Yes (Other)
  Sender: FDA-Public Use
  Company Number: US-ASTRAZENECA-2011SE63611

PATIENT
  Age: 62 Year
  Sex: Female

DRUGS (1)
  1. NEXIUM [Suspect]
     Route: 048

REACTIONS (2)
  - Cerebrovascular accident [Unknown]
  - International normalised ratio decreased [Unknown]
